FAERS Safety Report 21333968 (Version 5)
Quarter: 2024Q3

REPORT INFORMATION
  Report Type: Spontaneous
  Country: US (occurrence: US)
  Receive Date: 20220914
  Receipt Date: 20240708
  Transmission Date: 20241017
  Serious: No
  Sender: PFIZER
  Company Number: US-PFIZER INC-PV202200063151

PATIENT
  Age: 79 Year
  Sex: Female
  Weight: 67.13 kg

DRUGS (1)
  1. IBRANCE [Suspect]
     Active Substance: PALBOCICLIB
     Indication: Breast cancer metastatic
     Dosage: 125 MG, TAKES IT THREE WEEKS ON AND 7 DAYS OFF

REACTIONS (5)
  - Emotional disorder [Unknown]
  - Malaise [Unknown]
  - Asthenia [Unknown]
  - Poor quality sleep [Unknown]
  - Fatigue [Unknown]
